FAERS Safety Report 20887379 (Version 1)
Quarter: 2022Q2

REPORT INFORMATION
  Report Type: Spontaneous
  Country: CN (occurrence: CN)
  Receive Date: 20220528
  Receipt Date: 20220528
  Transmission Date: 20220721
  Serious: Yes (Other)
  Sender: FDA-Public Use
  Company Number: None

PATIENT
  Age: 44 Year
  Sex: Female
  Weight: 77.5 kg

DRUGS (6)
  1. CYCLOPHOSPHAMIDE [Suspect]
     Active Substance: CYCLOPHOSPHAMIDE
     Indication: Breast cancer female
     Dosage: UNK, QD, FIRST CYCLE OF TC CHEMOTHERAPY CYCLOPHOSPHAMIDE + SODIUM CHLORIDE
     Route: 041
  2. CYCLOPHOSPHAMIDE [Suspect]
     Active Substance: CYCLOPHOSPHAMIDE
     Dosage: 1 G, QD, SECOND CYCLE OF TC CHEMOTHERAPY, CYCLOPHOSPHAMIDE (1 G) + SODIUM CHLORIDE INJECTION (50 ML)
     Route: 041
     Dates: start: 20220408, end: 20220408
  3. SODIUM CHLORIDE [Suspect]
     Active Substance: SODIUM CHLORIDE
     Indication: Medication dilution
     Dosage: UNK, QD, FIRST CYCLE OF TC CHEMOTHERAPY DOCETAXEL + 0.9% SODIUM CHLORIDE
     Route: 041
  4. SODIUM CHLORIDE [Suspect]
     Active Substance: SODIUM CHLORIDE
     Dosage: 200 ML, ONCE DAILY,  SECOND CYCLE OF TC CHEMOTHERAPY, SECOND CYCLE OF TC CHEMOTHERAPY DOCETAXEL INJE
     Route: 041
     Dates: start: 20220408, end: 20220408
  5. SODIUM CHLORIDE [Suspect]
     Active Substance: SODIUM CHLORIDE
     Indication: Medication dilution
     Dosage: UNK, QD, FIRST CYCLE OF TC CHEMOTHERAPY CYCLOPHOSPHAMIDE + SODIUM CHLORIDE
     Route: 041
  6. SODIUM CHLORIDE [Suspect]
     Active Substance: SODIUM CHLORIDE
     Dosage: 50 ML, QD,  SECOND CYCLE OF TC CHEMOTHERAPY, CYCLOPHOSPHAMIDE (1 G) + SODIUM CHLORIDE (50 ML)
     Route: 041
     Dates: start: 20220408, end: 20220408

REACTIONS (2)
  - Decreased appetite [Recovering/Resolving]
  - Nausea [Recovering/Resolving]

NARRATIVE: CASE EVENT DATE: 20220409
